FAERS Safety Report 12771168 (Version 2)
Quarter: 2016Q4

REPORT INFORMATION
  Report Type: Spontaneous
  Country: IE (occurrence: IE)
  Receive Date: 20160922
  Receipt Date: 20161011
  Transmission Date: 20170207
  Serious: Yes (Death)
  Sender: FDA-Public Use
  Company Number: IE-PFIZER INC-2016441521

PATIENT
  Age: 73 Year
  Sex: Male

DRUGS (6)
  1. SUTENT [Suspect]
     Active Substance: SUNITINIB MALATE
     Indication: METASTATIC RENAL CELL CARCINOMA
     Dosage: UNK, ON 4/2 SCHEDULE
     Dates: start: 20110630
  2. GLUCOPHAGE [Concomitant]
     Active Substance: METFORMIN HYDROCHLORIDE
     Dosage: 100 MG, UNK
  3. NSA [Concomitant]
     Active Substance: UNSPECIFIED INGREDIENT
     Dosage: 75 MG, UNK
  4. LIPITOR [Concomitant]
     Active Substance: ATORVASTATIN CALCIUM
  5. SUTENT [Suspect]
     Active Substance: SUNITINIB MALATE
     Dosage: 50 UNK, 4/2
     Dates: start: 20110711, end: 20110801
  6. AMLODIPINE [Concomitant]
     Active Substance: AMLODIPINE BESYLATE

REACTIONS (1)
  - Death [Fatal]
